FAERS Safety Report 24142811 (Version 1)
Quarter: 2024Q3

REPORT INFORMATION
  Report Type: Spontaneous
  Country: NL (occurrence: NL)
  Receive Date: 20240726
  Receipt Date: 20240726
  Transmission Date: 20241017
  Serious: Yes (Death, Other)
  Sender: DR REDDYS
  Company Number: None

PATIENT
  Age: 91 Year
  Sex: Male

DRUGS (7)
  1. ABIRATERONE [Suspect]
     Active Substance: ABIRATERONE
     Indication: Prostate cancer
     Dosage: 1DD2T?TABLET 500 MG
     Dates: start: 20240501
  2. CARBASPIRIN [Concomitant]
     Active Substance: CARBASPIRIN
     Indication: Product used for unknown indication
     Dosage: 80 MG?CARBASALAAT CALCIUM POEDER 100MG / ASCAL CARDIO SACHET 100MG
  3. VOLCOLON [Concomitant]
     Indication: Product used for unknown indication
     Dosage: BAG (GRANULATE), 3.6 G (GRAM)?VOLCOLON GRANULATE SUGAR FREE 4G IN SACHET
  4. OMEPRAZOLE MAGNESIUM [Concomitant]
     Active Substance: OMEPRAZOLE MAGNESIUM
     Indication: Product used for unknown indication
     Dosage: GASTRO-RESISTANT TABLET, 20 MG (MILLIGRAM)?OMEPRAZOL TABLET MSR 20MG
  5. PREDNISOLONE [Concomitant]
     Active Substance: PREDNISOLONE
     Indication: Product used for unknown indication
     Dosage: CAPSULE, 10 MG (MILLIGRAM)
  6. BISOPROLOL [Concomitant]
     Active Substance: BISOPROLOL\BISOPROLOL FUMARATE
     Indication: Product used for unknown indication
     Dosage: TABLET, 2.5 MG (MILLIGRAM)
  7. SIMVASTATIN [Concomitant]
     Active Substance: SIMVASTATIN
     Indication: Product used for unknown indication
     Dosage: FILM COATED TABLET, 40 MG (MILLIGRAM)

REACTIONS (1)
  - Sepsis [Fatal]
